FAERS Safety Report 6376893-8 (Version None)
Quarter: 2009Q3

REPORT INFORMATION
  Report Type: 
  Country: None (occurrence: None)
  Receive Date: 20090921
  Receipt Date: 20090909
  Transmission Date: 20100115
  Serious: Yes (Other)
  Sender: FDA-Public Use
  Company Number: 2009AP003542

PATIENT
  Age: 82 Year
  Sex: Female

DRUGS (3)
  1. ALENDRONATE SODIUM [Suspect]
     Indication: OSTEOPOROSIS
     Dosage: 70 MG;QW
     Dates: start: 20000101
  2. CALCIUM (CALCIUM) [Concomitant]
  3. ERGOCALCIFEROL [Concomitant]

REACTIONS (3)
  - FALL [None]
  - FEMUR FRACTURE [None]
  - OSTEOPENIA [None]
